FAERS Safety Report 21500029 (Version 2)
Quarter: 2022Q4

REPORT INFORMATION
  Report Type: Spontaneous
  Country: US (occurrence: US)
  Receive Date: 20221024
  Receipt Date: 20221128
  Transmission Date: 20230113
  Serious: No
  Sender: FDA-Public Use
  Company Number: US-PFIZER INC-PV202200088284

PATIENT
  Age: 73 Year
  Sex: Female

DRUGS (12)
  1. IBRANCE [Suspect]
     Active Substance: PALBOCICLIB
     Dosage: 125 MG, ONCE DAILY 21 DAYS ON 7 DAYS OFF
     Route: 048
     Dates: start: 20191031
  2. IBRANCE [Suspect]
     Active Substance: PALBOCICLIB
     Dosage: 125 MG DAILY (21 DAYS ON, 7 DAYS OFF)
     Route: 048
     Dates: start: 20210220
  3. ATORVASTATIN [Concomitant]
     Active Substance: ATORVASTATIN
     Dosage: UNK
  4. CLOPIDOGREL [Concomitant]
     Active Substance: CLOPIDOGREL BISULFATE
     Dosage: UNK
  5. CALCIUM [Concomitant]
     Active Substance: CALCIUM
     Dosage: UNK
  6. ASPIRIN [Concomitant]
     Active Substance: ASPIRIN
     Dosage: UNK
  7. CARVEDILOL [Concomitant]
     Active Substance: CARVEDILOL
     Dosage: UNK
  8. CITALOPRAM [Concomitant]
     Active Substance: CITALOPRAM HYDROBROMIDE
     Dosage: UNK
  9. FUROSEMIDE [Concomitant]
     Active Substance: FUROSEMIDE
     Dosage: UNK
  10. LETROZOLE [Concomitant]
     Active Substance: LETROZOLE
     Dosage: UNK
  11. LISINOPRIL [Concomitant]
     Active Substance: LISINOPRIL
     Dosage: UNK
  12. ENTRESTO [Concomitant]
     Active Substance: SACUBITRIL\VALSARTAN
     Dosage: UNK

REACTIONS (2)
  - Memory impairment [Unknown]
  - Product dose omission in error [Unknown]
